FAERS Safety Report 6426843-0 (Version None)
Quarter: 2009Q4

REPORT INFORMATION
  Report Type: 
  Country: None (occurrence: None)
  Receive Date: 20091103
  Receipt Date: 20091103
  Transmission Date: 20100525
  Serious: Yes (Hospitalization)
  Sender: FDA-Public Use
  Company Number: None

PATIENT
  Age: 60 Year
  Sex: Male

DRUGS (2)
  1. KETOROLAC TROMETHAMINE [Suspect]
     Dosage: 30 MG ONCE IM
     Route: 030
     Dates: start: 20090220, end: 20090220
  2. PIPERACILLIN AND TAZOBACTAM [Suspect]
     Dosage: 3.375 GM QID IV
     Route: 042
     Dates: start: 20090219, end: 20090221

REACTIONS (3)
  - DRUG TOXICITY [None]
  - RENAL FAILURE ACUTE [None]
  - RENAL TUBULAR NECROSIS [None]
